FAERS Safety Report 13029970 (Version 1)
Quarter: 2016Q4

REPORT INFORMATION
  Report Type: Spontaneous
  Country: US (occurrence: US)
  Receive Date: 20161214
  Receipt Date: 20161214
  Transmission Date: 20170207
  Serious: Yes (Hospitalization)
  Sender: FDA-Public Use
  Company Number: None

PATIENT
  Age: 84 Year
  Sex: Male
  Weight: 74.7 kg

DRUGS (1)
  1. VIBERZI [Suspect]
     Active Substance: ELUXADOLINE

REACTIONS (8)
  - Intestinal obstruction [None]
  - Inguinal hernia [None]
  - Blood alkaline phosphatase increased [None]
  - Biliary dilatation [None]
  - Nausea [None]
  - Abdominal pain [None]
  - Lipase increased [None]
  - Vomiting [None]

NARRATIVE: CASE EVENT DATE: 20161209
